FAERS Safety Report 8547687 (Version 2)
Quarter: 2014Q2

REPORT INFORMATION
  Report Type: Spontaneous
  Country: US (occurrence: US)
  Receive Date: 20120504
  Receipt Date: 20140613
  Transmission Date: 20141212
  Serious: Yes (Hospitalization, Other)
  Sender: FDA-Public Use
  Company Number: US-ACTELION-A-US2003-02207

PATIENT
  Age: 66 Year
  Sex: Female

DRUGS (11)
  1. TRACLEER [Suspect]
     Indication: PULMONARY ARTERIAL HYPERTENSION
     Dosage: 62.5 MG, BID
     Route: 048
     Dates: start: 20021216
  2. TRACLEER [Suspect]
     Dosage: 62.5 MG, BID
     Route: 048
     Dates: start: 20030124, end: 20030207
  3. TRACLEER [Suspect]
     Dosage: 125 MG, BID
     Route: 048
     Dates: start: 20030208, end: 20030210
  4. TRACLEER [Suspect]
     Dosage: 125 UNK, UNK
     Route: 048
     Dates: start: 2010
  5. FLOLAN [Concomitant]
     Dosage: 1.5 MG, QID
  6. LASIX [Concomitant]
     Dosage: 80 MG, BID
  7. LIPITOR [Concomitant]
     Dosage: 5 MG, QD
  8. COUMADIN [Concomitant]
     Dosage: 10 MG, QD 5 DAYS
  9. COUMADIN [Concomitant]
     Dosage: 12.5 MG, 2 DAYS
  10. SYNTHROID [Concomitant]
  11. VITAMIN B [Concomitant]
     Indication: ANAEMIA
     Dosage: 1 SHOT PER MONTH

REACTIONS (13)
  - Retinal detachment [Not Recovered/Not Resolved]
  - Diabetes mellitus [Unknown]
  - Blood glucose increased [Unknown]
  - Atrial fibrillation [Unknown]
  - Atrial tachycardia [Recovered/Resolved with Sequelae]
  - Vitamin B complex deficiency [Unknown]
  - Fall [Recovered/Resolved]
  - Vision blurred [Recovered/Resolved with Sequelae]
  - Nausea [Recovered/Resolved with Sequelae]
  - Vomiting [Recovered/Resolved with Sequelae]
  - Peripheral swelling [Not Recovered/Not Resolved]
  - Palpitations [Recovered/Resolved with Sequelae]
  - Head injury [Recovered/Resolved]
